FAERS Safety Report 21445375 (Version 1)
Quarter: 2022Q4

REPORT INFORMATION
  Report Type: Report from Study
  Country: US (occurrence: US)
  Receive Date: 20221012
  Receipt Date: 20221012
  Transmission Date: 20230112
  Serious: No
  Sender: FDA-Public Use
  Company Number: US-ABBVIE-4150088

PATIENT
  Age: 45 Year
  Sex: Female

DRUGS (1)
  1. SKYRIZI [Suspect]
     Active Substance: RISANKIZUMAB-RZAA
     Indication: Product used for unknown indication
     Route: 058
     Dates: start: 202206

REACTIONS (4)
  - Skin plaque [Recovering/Resolving]
  - Skin swelling [Recovering/Resolving]
  - Therapeutic response shortened [Unknown]
  - Skin fissures [Recovering/Resolving]

NARRATIVE: CASE EVENT DATE: 20220901
